FAERS Safety Report 16185498 (Version 1)
Quarter: 2019Q2

REPORT INFORMATION
  Report Type: Spontaneous
  Country: FR (occurrence: FR)
  Receive Date: 20190411
  Receipt Date: 20190411
  Transmission Date: 20190711
  Serious: Yes (Other)
  Sender: FDA-Public Use
  Company Number: FR-MYLANLABS-2019M1034056

PATIENT
  Age: 6 Year
  Sex: Female

DRUGS (13)
  1. ZOPHREN                            /00955302/ [Concomitant]
     Active Substance: ONDANSETRON
     Route: 048
     Dates: start: 201805
  2. PHOSPHONEUROS [Concomitant]
     Active Substance: CALCIUM PHOSPHATE, DIBASIC, ANHYDROUS\MAGNESIUM GLYCEROPHOSPHATE\PHOSPHORIC ACID\SODIUM PHOSPHATE, DIBASIC
     Route: 048
     Dates: start: 201805
  3. VANCOMYCIN [Suspect]
     Active Substance: VANCOMYCIN
     Indication: PRODUCT USED FOR UNKNOWN INDICATION
     Dosage: INTERMITTENTE EN MAI 2018 AINSI QUE JUILLET, AO?T, SEPTEMBRE 2018
     Route: 042
     Dates: start: 201805
  4. ORACILLINE                         /00001801/ [Suspect]
     Active Substance: PENICILLIN V
     Indication: INFECTION PROPHYLAXIS
     Dosage: NON RENSEIGN?E
     Route: 048
  5. METHOTREXATE. [Suspect]
     Active Substance: METHOTREXATE
     Indication: LYMPHOCYTIC LEUKAEMIA
     Dosage: 60 MILLIGRAM
     Route: 042
     Dates: start: 201805
  6. DIFFU K [Concomitant]
     Active Substance: POTASSIUM CHLORIDE
     Route: 048
     Dates: start: 201805
  7. HYDROCORTISONE. [Suspect]
     Active Substance: HYDROCORTISONE
     Indication: LYMPHOCYTIC LEUKAEMIA
     Dosage: 15 MILLIGRAM
     Route: 042
     Dates: start: 201805
  8. ZOVIRAX [Suspect]
     Active Substance: ACYCLOVIR
     Indication: INFECTION PROPHYLAXIS
     Dosage: NON RENSEIGN?E
     Route: 048
  9. SPRYCEL [Suspect]
     Active Substance: DASATINIB
     Indication: LYMPHOCYTIC LEUKAEMIA
     Dosage: TRAITEMENT D?J? PRIS DE NOVEMBRE 2017 ? JANVIER 2018
     Route: 048
     Dates: start: 201805
  10. ARACYTINE [Suspect]
     Active Substance: CYTARABINE
     Indication: LYMPHOCYTIC LEUKAEMIA
     Dosage: 30 MILLIGRAM
     Route: 042
     Dates: start: 201805
  11. MERONEM [Suspect]
     Active Substance: MEROPENEM
     Indication: PRODUCT USED FOR UNKNOWN INDICATION
     Dosage: DE FA?ON INTERMITTENTE EN MAI 2018 AINSI QUE JUILLET, AO?T, SEPTEMBRE 2018
     Route: 042
     Dates: start: 201805
  12. NEORAL [Concomitant]
     Active Substance: CYCLOSPORINE
     Route: 048
     Dates: start: 201804, end: 201807
  13. MAG 2                              /00454301/ [Concomitant]
     Active Substance: MAGNESIUM CARBONATE
     Route: 048
     Dates: start: 201805

REACTIONS (1)
  - Enterocolitis haemorrhagic [Not Recovered/Not Resolved]

NARRATIVE: CASE EVENT DATE: 201806
